FAERS Safety Report 5229318-X (Version None)
Quarter: 2007Q1

REPORT INFORMATION
  Report Type: 
  Country: None (occurrence: None)
  Receive Date: 20070205
  Receipt Date: 20070130
  Transmission Date: 20070707
  Serious: Yes (Hospitalization, Other)
  Sender: FDA-Public Use
  Company Number: US-MERCK-0702USA00032

PATIENT
  Age: 69 Year
  Sex: Male
  Weight: 143 kg

DRUGS (5)
  1. PROSCAR [Suspect]
     Route: 048
  2. FLOMAX (MORNIFLUMATE) [Concomitant]
     Route: 065
  3. COUMADIN [Concomitant]
     Route: 065
  4. ZOCOR [Concomitant]
     Route: 048
  5. COREG [Concomitant]
     Route: 065

REACTIONS (2)
  - ARTHROPATHY [None]
  - OVERDOSE [None]
